FAERS Safety Report 9357623 (Version 1)
Quarter: 2013Q2

REPORT INFORMATION
  Report Type: Report from Study
  Country: US (occurrence: US)
  Receive Date: 20130620
  Receipt Date: 20130620
  Transmission Date: 20140414
  Serious: Yes (Hospitalization)
  Sender: FDA-Public Use
  Company Number: US-US-EMD SERONO, INC.-7218323

PATIENT
  Sex: Female
  Weight: 70 kg

DRUGS (6)
  1. REBIF [Suspect]
     Indication: MULTIPLE SCLEROSIS
     Dates: start: 2013, end: 201305
  2. VITAMIN D                          /00107901/ [Concomitant]
     Indication: PRODUCT USED FOR UNKNOWN INDICATION
  3. AMLODIPIN                          /00972401/ [Concomitant]
     Indication: HYPERTENSION
  4. NEURONTIN [Concomitant]
     Indication: FIBROMYALGIA
  5. VICODIN [Concomitant]
     Indication: PAIN
  6. AMBIEN [Concomitant]
     Indication: INSOMNIA

REACTIONS (2)
  - Type 2 diabetes mellitus [Recovering/Resolving]
  - Hepatic enzyme increased [Unknown]
